FAERS Safety Report 5233502-9 (Version None)
Quarter: 2007Q1

REPORT INFORMATION
  Report Type: 
  Country: None (occurrence: None)
  Receive Date: 20070206
  Receipt Date: 20070123
  Transmission Date: 20070707
  Serious: Yes (Other)
  Sender: FDA-Public Use
  Company Number: 235431

PATIENT
  Age: 65 Year
  Sex: Male
  Weight: 85 kg

DRUGS (1)
  1. XOLAIR [Suspect]
     Indication: DRUG USE FOR UNKNOWN INDICATION
     Dosage: 375 MG, UNK, SUBCUTANEOUS
     Route: 058
     Dates: start: 20050912

REACTIONS (3)
  - EPISTAXIS [None]
  - NASAL POLYPS [None]
  - RHINORRHOEA [None]
